FAERS Safety Report 19711052 (Version 1)
Quarter: 2021Q3

REPORT INFORMATION
  Report Type: Spontaneous
  Country: US (occurrence: US)
  Receive Date: 20210816
  Receipt Date: 20210816
  Transmission Date: 20211014
  Serious: No
  Sender: FDA-Public Use
  Company Number: US-SA-2021SA267341

PATIENT
  Age: 14 Year
  Sex: Female
  Weight: 69.43 kg

DRUGS (8)
  1. ALBUTEROL SULFATE HFA [Concomitant]
     Active Substance: ALBUTEROL SULFATE
  2. EPIPEN [Concomitant]
     Active Substance: EPINEPHRINE
     Dosage: UNK, 0.3MG/0.3 AUTO INJCT
  3. EPIPEN [Concomitant]
     Active Substance: EPINEPHRINE
     Dosage: UNK,0.3MG/0.3 AUTO INJCT
  4. DUPIXENT [Suspect]
     Active Substance: DUPILUMAB
     Indication: ASTHMA
     Dosage: 300 MG, QOW
     Route: 058
     Dates: start: 202006
  5. SYMBICORT [Concomitant]
     Active Substance: BUDESONIDE\FORMOTEROL FUMARATE DIHYDRATE
     Dosage: UNK, 160?4.5MCG HFA AER AD
  6. FEXOFENADINE HCL [Concomitant]
     Active Substance: FEXOFENADINE HYDROCHLORIDE
  7. VITAMIN D3 [Concomitant]
     Active Substance: CHOLECALCIFEROL
     Dosage: UNK, 10(400)/ML DROPS
  8. MONTELUKAST SODIUM. [Concomitant]
     Active Substance: MONTELUKAST SODIUM

REACTIONS (2)
  - Nasopharyngitis [Recovered/Resolved]
  - Product use issue [Unknown]

NARRATIVE: CASE EVENT DATE: 202006
